FAERS Safety Report 6167213-2 (Version None)
Quarter: 2009Q2

REPORT INFORMATION
  Report Type: 
  Country: None (occurrence: None)
  Receive Date: 20090424
  Receipt Date: 20090416
  Transmission Date: 20091009
  Serious: Yes (Other)
  Sender: FDA-Public Use
  Company Number: US-PFIZER INC-2004230293US

PATIENT

DRUGS (5)
  1. PROVERA [Suspect]
     Indication: HORMONE REPLACEMENT THERAPY
     Dates: start: 19840101, end: 19970101
  2. PREMARIN [Suspect]
     Indication: HORMONE REPLACEMENT THERAPY
     Dates: start: 19830101, end: 19970101
  3. PREMPRO [Suspect]
     Indication: HORMONE REPLACEMENT THERAPY
     Dates: start: 19970101, end: 20011001
  4. WARFARIN SODIUM [Concomitant]
     Indication: THROMBOSIS
     Route: 065
     Dates: start: 20011101
  5. TRIAMTERENE [Concomitant]
     Indication: DIURETIC THERAPY
     Route: 065
     Dates: start: 20021201

REACTIONS (4)
  - BREAST CANCER FEMALE [None]
  - GALLBLADDER DISORDER [None]
  - OVARIAN CANCER [None]
  - THROMBOSIS [None]
